FAERS Safety Report 14634117 (Version 1)
Quarter: 2018Q1

REPORT INFORMATION
  Report Type: Spontaneous
  Country: DE (occurrence: DE)
  Receive Date: 20180314
  Receipt Date: 20180314
  Transmission Date: 20180509
  Serious: Yes (Hospitalization)
  Sender: FDA-Public Use
  Company Number: DE-ABBVIE-18S-062-2270492-00

PATIENT
  Age: 9 Month
  Sex: Male
  Weight: 8.2 kg

DRUGS (5)
  1. SYNAGIS [Suspect]
     Active Substance: PALIVIZUMAB
     Indication: PREMATURE BABY
     Dosage: 50 MG AND 100 MG
     Route: 030
     Dates: start: 20171102, end: 20171102
  2. SYNAGIS [Suspect]
     Active Substance: PALIVIZUMAB
     Route: 030
     Dates: start: 20180201, end: 20180201
  3. SYNAGIS [Suspect]
     Active Substance: PALIVIZUMAB
     Route: 030
     Dates: start: 20180305, end: 20180305
  4. SYNAGIS [Suspect]
     Active Substance: PALIVIZUMAB
     Dosage: 50 MG AND 100 MG
     Route: 030
     Dates: start: 20180103, end: 20180103
  5. SYNAGIS [Suspect]
     Active Substance: PALIVIZUMAB
     Dosage: 50 MG AND 100 MG
     Route: 030
     Dates: start: 20171201, end: 20171201

REACTIONS (1)
  - Respiratory syncytial virus bronchiolitis [Recovered/Resolved]

NARRATIVE: CASE EVENT DATE: 20180224
